FAERS Safety Report 16316681 (Version 2)
Quarter: 2020Q4

REPORT INFORMATION
  Report Type: Report from Study
  Country: US (occurrence: US)
  Receive Date: 20190515
  Receipt Date: 20201221
  Transmission Date: 20210113
  Serious: Yes (Other)
  Sender: FDA-Public Use
  Company Number: PHEH2019US020290

PATIENT
  Sex: Male

DRUGS (2)
  1. GILENYA [Suspect]
     Active Substance: FINGOLIMOD HYDROCHLORIDE
     Indication: MULTIPLE SCLEROSIS
     Dosage: 0.5 MG, QD
     Route: 048
     Dates: start: 20180307
  2. GILENYA [Suspect]
     Active Substance: FINGOLIMOD HYDROCHLORIDE
     Dosage: 0.5 MG, QD
     Route: 048
     Dates: start: 20180314

REACTIONS (10)
  - Dizziness [Unknown]
  - Back pain [Unknown]
  - Diabetes mellitus [Unknown]
  - Multiple sclerosis relapse [Recovered/Resolved]
  - Cognitive disorder [Unknown]
  - Fatigue [Unknown]
  - Diarrhoea [Unknown]
  - Balance disorder [Unknown]
  - Hypertriglyceridaemia [Unknown]
  - Arthralgia [Unknown]
